FAERS Safety Report 9363409 (Version 2)
Quarter: 2013Q3

REPORT INFORMATION
  Report Type: Spontaneous
  Country: US (occurrence: US)
  Receive Date: 20130624
  Receipt Date: 20130716
  Transmission Date: 20140515
  Serious: No
  Sender: FDA-Public Use
  Company Number: US-009507513-1306USA008685

PATIENT
  Sex: Female

DRUGS (2)
  1. JANUVIA [Suspect]
     Dosage: 100 MG, QD
     Route: 048
     Dates: start: 201004
  2. RANITIDINE [Suspect]

REACTIONS (3)
  - Wrong drug administered [Unknown]
  - Product quality issue [Unknown]
  - No adverse event [Unknown]
